FAERS Safety Report 9802064 (Version 1)
Quarter: 2014Q1

REPORT INFORMATION
  Report Type: Spontaneous
  Country: US (occurrence: US)
  Receive Date: 20140107
  Receipt Date: 20140107
  Transmission Date: 20141002
  Serious: No
  Sender: FDA-Public Use
  Company Number: US-BIOGENIDEC-2013BI124416

PATIENT
  Age: 31 Year
  Sex: Female

DRUGS (7)
  1. TECFIDERA [Suspect]
     Indication: MULTIPLE SCLEROSIS
     Route: 048
     Dates: start: 20131217, end: 20131224
  2. TECFIDERA [Suspect]
     Indication: MULTIPLE SCLEROSIS
     Route: 048
     Dates: start: 20131224
  3. XANAX [Concomitant]
  4. PAROXETINE [Concomitant]
  5. PHENERGAN [Concomitant]
  6. ULTRAM [Concomitant]
  7. CLONAZEPAM [Concomitant]

REACTIONS (1)
  - Asthenia [Not Recovered/Not Resolved]
